FAERS Safety Report 7016629-0 (Version None)
Quarter: 2010Q3

REPORT INFORMATION
  Report Type: 
  Country: None (occurrence: None)
  Receive Date: 20100927
  Receipt Date: 20100923
  Transmission Date: 20110219
  Serious: Yes (Death, Hospitalization)
  Sender: FDA-Public Use
  Company Number: B0675905A

PATIENT
  Age: 77 Year
  Sex: Male
  Weight: 80 kg

DRUGS (1)
  1. AVANDAMET [Suspect]
     Route: 048
     Dates: start: 20060601

REACTIONS (6)
  - CARDIAC FAILURE [None]
  - CARDIAC OUTPUT DECREASED [None]
  - CHEST PAIN [None]
  - EXERCISE TOLERANCE DECREASED [None]
  - OEDEMA PERIPHERAL [None]
  - SOMNOLENCE [None]
